FAERS Safety Report 8676593 (Version 3)
Quarter: 2012Q4

REPORT INFORMATION
  Report Type: 
  Country: GB (occurrence: GB)
  Receive Date: 20120722
  Receipt Date: 20121224
  Transmission Date: 20130627
  Serious: Yes (Hospitalization)
  Sender: FDA-Public Use
  Company Number: PHHY2012GB060438

PATIENT
  Age: 69 Year
  Sex: Female
  Weight: 64 kg

DRUGS (17)
  1. METOCLOPRAMIDE [Suspect]
     Dosage: 10 mg, UNK
     Route: 048
     Dates: start: 20080806, end: 201109
  2. SEROXAT [Suspect]
     Indication: DEPRESSION
     Dosage: 20 mg, BID
     Route: 048
     Dates: start: 19970707
  3. SEROXAT [Suspect]
     Dosage: 10 DF, UNK
     Route: 048
     Dates: start: 200102, end: 201005
  4. SEROXAT [Suspect]
     Dosage: 20 mg, UNK
     Route: 048
     Dates: start: 201007, end: 201109
  5. SEROXAT [Suspect]
     Dosage: 40 mg
     Route: 048
     Dates: start: 20111013, end: 20111206
  6. TETRABENAZINE [Concomitant]
     Dosage: 4.5 mg, QD
     Route: 048
     Dates: start: 20111128, end: 20120320
  7. LORAZEPAM [Concomitant]
     Dosage: 1 mg, TID
     Route: 048
     Dates: start: 20120329, end: 20120523
  8. MIRTAZAPINE [Concomitant]
     Dosage: 30 mg, UNK
     Dates: start: 20120501
  9. MIRTAZAPINE [Concomitant]
     Dosage: 15 mg, QD
  10. PROPRANOLOL [Concomitant]
     Dosage: 10 mg, Q4H
     Route: 048
     Dates: start: 20120501
  11. ACRIVASTINE [Concomitant]
     Dosage: 8 mg, TID
     Dates: start: 19950728
  12. ATORVASTATIN [Concomitant]
     Dosage: 40 mg, QD
     Dates: start: 20031114
  13. BECONASE [Concomitant]
     Dates: start: 20071120
  14. BENDROFLUMETHIAZIDE [Concomitant]
     Dosage: 2.5 mg, QD
     Dates: start: 20050420
  15. FENOFIBRATE [Concomitant]
     Dosage: 160 mg, QD
     Dates: start: 20030520
  16. LANSOPRAZOLE [Concomitant]
     Dosage: 30 mg, QD
     Dates: start: 20080627
  17. RAMIPRIL [Concomitant]
     Dosage: 2.5 mg, QD
     Dates: start: 20080201

REACTIONS (5)
  - Hallucination [Not Recovered/Not Resolved]
  - Eating disorder [Not Recovered/Not Resolved]
  - Fall [Not Recovered/Not Resolved]
  - Akathisia [Not Recovered/Not Resolved]
  - Muscle contractions involuntary [Not Recovered/Not Resolved]
